FAERS Safety Report 5732772-8 (Version None)
Quarter: 2008Q2

REPORT INFORMATION
  Report Type: 
  Country: None (occurrence: None)
  Receive Date: 20080507
  Receipt Date: 20080507
  Transmission Date: 20081010
  Serious: Yes (Other)
  Sender: FDA-Public Use
  Company Number: None

PATIENT
  Sex: Male
  Weight: 113.3993 kg

DRUGS (1)
  1. GABAPENTIN [Suspect]
     Indication: ANXIETY
     Dosage: ONE  4PM  PO
     Route: 048
     Dates: start: 20080320, end: 20080424

REACTIONS (3)
  - BLISTER [None]
  - RASH ERYTHEMATOUS [None]
  - RASH PRURITIC [None]
